FAERS Safety Report 14505520 (Version 7)
Quarter: 2019Q1

REPORT INFORMATION
  Report Type: Spontaneous
  Country: FR (occurrence: FR)
  Receive Date: 20180208
  Receipt Date: 20190104
  Transmission Date: 20190417
  Serious: Yes (Other)
  Sender: FDA-Public Use
  Company Number: FR-AUROBINDO-AUR-APL-2018-004752

PATIENT
  Age: 62 Year
  Sex: Male

DRUGS (2)
  1. PREDNISONE. [Suspect]
     Active Substance: PREDNISONE
     Indication: POLYMYALGIA RHEUMATICA
     Dosage: 20 MG, UNK
     Route: 065
  2. PREDNISONE. [Suspect]
     Active Substance: PREDNISONE
     Dosage: 14 MG, UNK
     Route: 065

REACTIONS (11)
  - Blindness transient [Recovered/Resolved]
  - Metamorphopsia [Recovered/Resolved]
  - Chorioretinopathy [Recovered/Resolved]
  - Chorioretinitis [Unknown]
  - Dyschromatopsia [Recovered/Resolved]
  - Macular degeneration [Unknown]
  - Visual field defect [Recovered/Resolved]
  - Visual acuity reduced [Recovered/Resolved]
  - Maculopathy [Recovered/Resolved]
  - Blindness [Recovered/Resolved]
  - Retinal detachment [Recovered/Resolved]
